FAERS Safety Report 8404060 (Version 2)
Quarter: 2013Q2

REPORT INFORMATION
  Report Type: Spontaneous
  Country: US (occurrence: None)
  Receive Date: 20111227
  Receipt Date: 20120426
  Transmission Date: 20140414
  Serious: Yes (Other)
  Sender: FDA-Public Use
  Company Number: PHEH2011US009052

PATIENT
  Age: 32 Year
  Sex: Female
  Weight: 96.6 kg

DRUGS (10)
  1. GILENYA [Suspect]
     Indication: MULTIPLE SCLEROSIS
     Dosage: 0.5 MG, DAILY, ORAL
     Route: 048
     Dates: start: 20110927, end: 20111108
  2. CYMBALTA [Concomitant]
  3. PLAQUENIL [Concomitant]
  4. NEURONTIN (GABAPENTIN) [Concomitant]
  5. VESICARE (SOLIFENACIN) [Concomitant]
  6. CELEBREX (CELECOXIB) [Concomitant]
  7. VERAPAMIL (VERAPAMIL) [Concomitant]
  8. TOPAMAX (TOPIRAMATE) [Concomitant]
  9. CEREBREX  (CALCIUM GLYCEROPHOSPHATE, GLUTAMIC ACID, VITAMIN B NOS) [Concomitant]
  10. PREDNISONE [Concomitant]

REACTIONS (3)
  - LIVER FUNCTION TEST ABNORMAL [None]
  - ALANINE AMINOTRANSFERASE INCREASED [None]
  - ASPARTATE AMINOTRANSFERASE INCREASED [None]
